FAERS Safety Report 23588315 (Version 1)
Quarter: 2024Q1

REPORT INFORMATION
  Report Type: Report from Study
  Country: US (occurrence: US)
  Receive Date: 20240302
  Receipt Date: 20240302
  Transmission Date: 20240410
  Serious: Yes (Other)
  Sender: FDA-Public Use
  Company Number: US-002147023-NVSC2024US042338

PATIENT
  Age: 64 Year
  Sex: Female

DRUGS (1)
  1. KESIMPTA [Suspect]
     Active Substance: OFATUMUMAB
     Indication: Product used for unknown indication
     Dosage: UNK
     Route: 065
     Dates: start: 20240123

REACTIONS (11)
  - Systemic lupus erythematosus [Unknown]
  - Infection [Unknown]
  - Cough [Unknown]
  - Arthralgia [Unknown]
  - Fall [Unknown]
  - Paraesthesia [Unknown]
  - Temperature intolerance [Unknown]
  - Condition aggravated [Unknown]
  - Dizziness [Unknown]
  - Scoliosis [Unknown]
  - Intervertebral disc protrusion [Unknown]

NARRATIVE: CASE EVENT DATE: 20240227
